FAERS Safety Report 15089148 (Version 3)
Quarter: 2018Q3

REPORT INFORMATION
  Report Type: Spontaneous
  Country: US (occurrence: US)
  Receive Date: 20180629
  Receipt Date: 20180917
  Transmission Date: 20181010
  Serious: No
  Sender: FDA-Public Use
  Company Number: US-SA-2018SA173207

PATIENT
  Age: 44 Year
  Sex: Female

DRUGS (1)
  1. AUBAGIO [Suspect]
     Active Substance: TERIFLUNOMIDE
     Indication: MULTIPLE SCLEROSIS
     Dosage: 14 MG, QD
     Route: 048
     Dates: start: 20180510, end: 20180907

REACTIONS (9)
  - Burning sensation [Unknown]
  - Abdominal pain upper [Unknown]
  - Pain [Unknown]
  - Diarrhoea [Unknown]
  - Headache [Unknown]
  - Middle insomnia [Unknown]
  - Back pain [Unknown]
  - Alopecia [Unknown]
  - Rash [Unknown]

NARRATIVE: CASE EVENT DATE: 2018
